FAERS Safety Report 4424468-X (Version None)
Quarter: 2004Q3

REPORT INFORMATION
  Report Type: 
  Country: None (occurrence: None)
  Receive Date: 20040719
  Receipt Date: 20031212
  Transmission Date: 20050211
  Serious: Yes (Hospitalization)
  Sender: FDA-Public Use
  Company Number: 188459

PATIENT
  Sex: Female
  Weight: 48.0813 kg

DRUGS (4)
  1. AVONEX [Suspect]
     Indication: MULTIPLE SCLEROSIS
     Dates: start: 20000101, end: 20030101
  2. AVONEX [Suspect]
     Indication: MULTIPLE SCLEROSIS
     Dates: start: 20030101
  3. SYNTHROID [Concomitant]
  4. THEO-DUR [Concomitant]

REACTIONS (1)
  - MULTIPLE SCLEROSIS [None]
